FAERS Safety Report 25264106 (Version 6)
Quarter: 2025Q4

REPORT INFORMATION
  Report Type: Spontaneous
  Country: US (occurrence: US)
  Receive Date: 20250502
  Receipt Date: 20251007
  Transmission Date: 20260118
  Serious: Yes (Other)
  Sender: GILEAD
  Company Number: US-GILEAD-2025-0712339

PATIENT
  Sex: Male

DRUGS (2)
  1. TRUVADA [Suspect]
     Active Substance: EMTRICITABINE\TENOFOVIR DISOPROXIL FUMARATE
     Indication: HIV infection
     Dosage: UNK
     Route: 048
     Dates: start: 20130901, end: 20161201
  2. COMPLERA [Suspect]
     Active Substance: EMTRICITABINE\RILPIVIRINE HYDROCHLORIDE\TENOFOVIR DISOPROXIL FUMARATE
     Indication: HIV infection
     Dosage: UNK
     Route: 048
     Dates: start: 201801, end: 202202

REACTIONS (7)
  - Chronic kidney disease [Unknown]
  - Renal failure [Unknown]
  - Osteonecrosis [Unknown]
  - Renal impairment [Not Recovered/Not Resolved]
  - Bone density decreased [Unknown]
  - Bone loss [Unknown]
  - Tooth loss [Unknown]

NARRATIVE: CASE EVENT DATE: 20150101
